FAERS Safety Report 10875367 (Version 2)
Quarter: 2015Q2

REPORT INFORMATION
  Report Type: Spontaneous
  Country: US (occurrence: US)
  Receive Date: 20150227
  Receipt Date: 20150409
  Transmission Date: 20150821
  Serious: No
  Sender: FDA-Public Use
  Company Number: US-PFIZER INC-2015069707

PATIENT
  Age: 39 Year
  Sex: Female

DRUGS (1)
  1. PRISTIQ EXTENDED RELEASE [Suspect]
     Active Substance: DESVENLAFAXINE SUCCINATE
     Indication: DEPRESSION
     Dosage: 25 MG, 1X/DAY

REACTIONS (4)
  - Intentional product misuse [Not Recovered/Not Resolved]
  - Dizziness [Unknown]
  - Mood altered [Recovered/Resolved]
  - Headache [Recovered/Resolved]
